FAERS Safety Report 5259552-4 (Version None)
Quarter: 2007Q1

REPORT INFORMATION
  Report Type: 
  Country: None (occurrence: None)
  Receive Date: 20070306
  Receipt Date: 20070220
  Transmission Date: 20070707
  Serious: Yes (Death)
  Sender: FDA-Public Use
  Company Number: T200700236

PATIENT
  Age: 49 Year
  Sex: Female
  Weight: 66.7 kg

DRUGS (4)
  1. METHADONE (METHADONE  HYDROCHLORIDE) TABLET, 10MG [Suspect]
     Indication: MUSCULOSKELETAL PAIN
     Dosage: 1-2 TABLETS, 1-3 TIMES A DAY, ORAL
     Route: 048
     Dates: start: 20031020
  2. FIORINAL WITH CODEINE (ACETYLSALICYLIC ACID, BUTALBITAL, CAFFEINE, COD [Concomitant]
  3. MS CONTIN [Concomitant]
  4. TEMAZEPAM [Concomitant]

REACTIONS (2)
  - ACCIDENTAL OVERDOSE [None]
  - MULTIPLE DRUG OVERDOSE [None]
